FAERS Safety Report 17184628 (Version 1)
Quarter: 2019Q4

REPORT INFORMATION
  Report Type: Spontaneous
  Country: US (occurrence: US)
  Receive Date: 20191220
  Receipt Date: 20191220
  Transmission Date: 20200122
  Serious: No
  Sender: FDA-Public Use
  Company Number: US-BAYER-2019-223344

PATIENT
  Sex: Female

DRUGS (5)
  1. MINERALS NOS;VITAMINS NOS [Concomitant]
     Active Substance: MINERALS\VITAMINS
  2. CALTRATE 600+D [Concomitant]
  3. ASPIRIN (PAIN AND FEVER) [Concomitant]
     Active Substance: ASPIRIN
     Dosage: UNK
  4. PNEUMOVAX 23 [Concomitant]
     Active Substance: PNEUMOCOCCAL VACCINE, POLYVALENT 23
  5. INTERFERON BETA - 1B [Suspect]
     Active Substance: INTERFERON BETA-1B
     Indication: MULTIPLE SCLEROSIS
     Dosage: 0.25 MG, QOD
     Route: 058
     Dates: start: 20131023

REACTIONS (2)
  - Fatigue [None]
  - Product dose omission [Not Recovered/Not Resolved]
